FAERS Safety Report 9000211 (Version 2)
Quarter: 2013Q2

REPORT INFORMATION
  Report Type: Spontaneous
  Country: GR (occurrence: GR)
  Receive Date: 20130102
  Receipt Date: 20130416
  Transmission Date: 20140414
  Serious: Yes (Other)
  Sender: FDA-Public Use
  Company Number: GR-JNJFOC-20121210348

PATIENT
  Sex: Female

DRUGS (2)
  1. STELARA [Suspect]
     Indication: PSORIASIS
     Route: 058
  2. METHOTREXATE [Suspect]
     Indication: OSTEOARTHRITIS
     Route: 065

REACTIONS (2)
  - Osteoarthritis [Not Recovered/Not Resolved]
  - Musculoskeletal pain [Unknown]
